FAERS Safety Report 9165301 (Version 1)
Quarter: 2013Q1

REPORT INFORMATION
  Report Type: Spontaneous
  Country: CN (occurrence: CN)
  Receive Date: 20130315
  Receipt Date: 20130315
  Transmission Date: 20140127
  Serious: Yes (Hospitalization)
  Sender: FDA-Public Use
  Company Number: CN-SANOFI-AVENTIS-2013SA025485

PATIENT
  Age: 29 Year
  Sex: Female
  Weight: 73 kg

DRUGS (11)
  1. MAGNESIUM SULFATE [Suspect]
     Indication: PRE-ECLAMPSIA
     Dosage: 4% MAGNESIUM SULPHATE 500 ML SOLUTION AT 40 ML/HOUR
     Route: 042
  2. FUROSEMIDE [Suspect]
     Indication: TOXICITY TO VARIOUS AGENTS
     Route: 065
  3. PROPOFOL [Concomitant]
     Indication: GENERAL ANAESTHESIA
  4. TRAMADOL [Concomitant]
     Indication: SEDATION
  5. ANALGESICS [Concomitant]
  6. REMIFENTANIL [Concomitant]
     Indication: GENERAL ANAESTHESIA
  7. ROCURONIUM [Concomitant]
     Indication: GENERAL ANAESTHESIA
  8. ISOFLURANE [Concomitant]
     Indication: MECHANICAL VENTILATION
     Dosage: ISOFLURANE 1.5%-2% IN OXYGEN 2 L/MINUTE
  9. OXYGEN [Concomitant]
     Indication: MECHANICAL VENTILATION
     Dosage: 2 L/MIN
  10. SUFENTANIL [Concomitant]
     Route: 042
  11. LACTATED RINGER^S INJECTION [Concomitant]
     Indication: HAEMORRHAGE

REACTIONS (14)
  - Hypermagnesaemia [Recovering/Resolving]
  - Overdose [Unknown]
  - Incorrect drug administration rate [Unknown]
  - Fatigue [Recovering/Resolving]
  - Somnolence [Recovering/Resolving]
  - Blood pressure decreased [Recovering/Resolving]
  - Hyporeflexia [Recovering/Resolving]
  - Delayed recovery from anaesthesia [Recovered/Resolved]
  - Loss of consciousness [Recovered/Resolved]
  - Unresponsive to stimuli [Recovered/Resolved]
  - Metabolic acidosis [Recovered/Resolved]
  - Blood pH decreased [Unknown]
  - Respiratory acidosis [Recovered/Resolved]
  - Respiratory rate increased [Recovered/Resolved]
